FAERS Safety Report 16381346 (Version 1)
Quarter: 2019Q2

REPORT INFORMATION
  Report Type: Spontaneous
  Country: NL (occurrence: NL)
  Receive Date: 20190603
  Receipt Date: 20190603
  Transmission Date: 20190711
  Serious: Yes (Hospitalization)
  Sender: FDA-Public Use
  Company Number: NL-TEVA-2019-NL-1057030

PATIENT
  Age: 53 Year
  Sex: Male
  Weight: 74 kg

DRUGS (11)
  1. LISINOPRIL TABLET, 10 MG (MILLIGRAM) [Suspect]
     Active Substance: LISINOPRIL
     Indication: HYPERTENSION
     Dosage: 10 MILLIGRAM DAILY; 1D1
     Route: 065
     Dates: start: 2017, end: 20190507
  2. COTRIMOXAZOL 480 TABLET 80/400MG [Concomitant]
     Dosage: 1 DOSAGE FORMS DAILY; 1 X PER DAY 1 PIECE
  3. FUROSEMIDE TABLET 40MG [Concomitant]
     Active Substance: FUROSEMIDE
     Dosage: 2 X PER DAY 3 PIECE
  4. METOCLOPRAMIDE TABLET 10MG [Concomitant]
     Active Substance: METOCLOPRAMIDE
     Dosage: IF NECESSARY 3 X PER DAY 0.5 PIECE
     Route: 065
  5. VALACYCLOVIR [Concomitant]
     Active Substance: VALACYCLOVIR HYDROCHLORIDE
     Dosage: 2 X PER DAY 1 PIECE
  6. MULTIVITAMINE VOOR HAEMODIALYSE ADDED [Concomitant]
     Dosage: 1 DOSAGE FORMS DAILY;  X PER DAY 1 PIECE
  7. PANTOPRAZOL TABLET MSR 40MG [Concomitant]
     Active Substance: PANTOPRAZOLE SODIUM
     Dosage: 40 MILLIGRAM DAILY; 1 X PER DAY 1 PIECE
  8. LANTHAANCARBONAAT KAUWTABLET 500MG [Concomitant]
     Dosage: 3 X PER DAY 2 PIECE
     Route: 065
  9. AMLODIPINE [Concomitant]
     Active Substance: AMLODIPINE BESYLATE
     Dosage: 5 MILLIGRAM DAILY; 1 X PER DAY 1 PIECE
     Route: 065
  10. PARACETAMOL TABLET 1000MG [Concomitant]
     Dosage: IF NECESSARY 4 X PER DAY 1 PIECE
  11. METOPROLOL TABLET 100MG [Concomitant]
     Active Substance: METOPROLOL
     Dosage: 2 X PER DAY 1 PIECE

REACTIONS (2)
  - Tongue oedema [Recovered/Resolved]
  - Angioedema [Recovered/Resolved]

NARRATIVE: CASE EVENT DATE: 20190507
